FAERS Safety Report 5008998-8 (Version None)
Quarter: 2006Q2

REPORT INFORMATION
  Report Type: 
  Country: None (occurrence: None)
  Receive Date: 20060519
  Receipt Date: 20060510
  Transmission Date: 20061013
  Serious: Yes (Death, Life-Threatening)
  Sender: FDA-Public Use
  Company Number: FRWYE615410MAY06

PATIENT
  Age: 80 Year
  Sex: Male

DRUGS (6)
  1. RAPAMUNE [Suspect]
     Indication: ACUTE MYELOID LEUKAEMIA
     Dosage: 4 MG TOTAL DAILY ORAL; 6 MG, TOTAL DAILY ORAL
     Route: 048
     Dates: start: 20051008, end: 20051022
  2. RAPAMUNE [Suspect]
     Indication: ACUTE MYELOID LEUKAEMIA
     Dosage: 4 MG TOTAL DAILY ORAL; 6 MG, TOTAL DAILY ORAL
     Route: 048
     Dates: start: 20050101, end: 20051119
  3. CYTARABINE [Suspect]
     Indication: ACUTE MYELOID LEUKAEMIA
     Dosage: SC
     Route: 058
     Dates: start: 20051003, end: 20051012
  4. CYTARABINE [Suspect]
     Indication: ACUTE MYELOID LEUKAEMIA
     Dosage: SC
     Route: 058
     Dates: start: 20050101, end: 20051119
  5. CIPROFLOXACIN [Suspect]
     Indication: LOBAR PNEUMONIA
     Dates: start: 20051001
  6. HYDREA [Suspect]
     Indication: ACUTE MYELOID LEUKAEMIA
     Dosage: ORAL
     Route: 048
     Dates: start: 20050928, end: 20051002

REACTIONS (12)
  - ABSCESS LIMB [None]
  - COMA [None]
  - FEBRILE BONE MARROW APLASIA [None]
  - GENERAL PHYSICAL HEALTH DETERIORATION [None]
  - HAEMATEMESIS [None]
  - HAEMOGLOBIN DECREASED [None]
  - HALLUCINATION, VISUAL [None]
  - LOBAR PNEUMONIA [None]
  - NEUTROPHIL COUNT DECREASED [None]
  - PLATELET COUNT DECREASED [None]
  - WHITE BLOOD CELL COUNT DECREASED [None]
  - WHITE BLOOD CELL COUNT INCREASED [None]
